FAERS Safety Report 16016912 (Version 1)
Quarter: 2019Q1

REPORT INFORMATION
  Report Type: Spontaneous
  Country: US (occurrence: US)
  Receive Date: 20190228
  Receipt Date: 20190228
  Transmission Date: 20190418
  Serious: No
  Sender: FDA-Public Use
  Company Number: US-PFIZER INC-2019080232

PATIENT
  Age: 39 Year
  Sex: Male
  Weight: 74.84 kg

DRUGS (2)
  1. NEURONTIN [Suspect]
     Active Substance: GABAPENTIN
     Dosage: UNK (WITHIN 1200MG)
  2. NEURONTIN [Suspect]
     Active Substance: GABAPENTIN
     Indication: SPINAL FUSION SURGERY
     Dosage: 300 MG, 3X/DAY
     Dates: start: 201509, end: 201509

REACTIONS (2)
  - Malaise [Unknown]
  - Drug ineffective for unapproved indication [Unknown]

NARRATIVE: CASE EVENT DATE: 201509
